FAERS Safety Report 14046152 (Version 3)
Quarter: 2018Q2

REPORT INFORMATION
  Report Type: Report from Study
  Country: US (occurrence: US)
  Receive Date: 20171005
  Receipt Date: 20180427
  Transmission Date: 20180711
  Serious: Yes (Other)
  Sender: FDA-Public Use
  Company Number: US-JNJFOC-20170908398

PATIENT
  Sex: Male

DRUGS (19)
  1. IMBRUVICA [Suspect]
     Active Substance: IBRUTINIB
     Indication: CHRONIC LYMPHOCYTIC LEUKAEMIA
     Dosage: 420 MG, QD
     Route: 048
     Dates: start: 20161103
  2. VALIUM [Concomitant]
     Active Substance: DIAZEPAM
  3. SIMVASTATIN. [Concomitant]
     Active Substance: SIMVASTATIN
  4. NIFEDIPINE. [Concomitant]
     Active Substance: NIFEDIPINE
  5. TORSEMIDE. [Concomitant]
     Active Substance: TORSEMIDE
  6. CALCITRIOL. [Concomitant]
     Active Substance: CALCITRIOL
  7. FISH OIL [Concomitant]
     Active Substance: FISH OIL
  8. VITAMIN D [Concomitant]
     Active Substance: CHOLECALCIFEROL
  9. NORTRIPTYLINE [Concomitant]
     Active Substance: NORTRIPTYLINE
  10. KLONOPIN [Concomitant]
     Active Substance: CLONAZEPAM
  11. TOPROL XL [Concomitant]
     Active Substance: METOPROLOL SUCCINATE
  12. LISINOPRIL. [Concomitant]
     Active Substance: LISINOPRIL
  13. ACYCLOVIR. [Concomitant]
     Active Substance: ACYCLOVIR
  14. SPIRONOLACTONE. [Concomitant]
     Active Substance: SPIRONOLACTONE
  15. IMBRUVICA [Suspect]
     Active Substance: IBRUTINIB
     Indication: CHRONIC LYMPHOCYTIC LEUKAEMIA
     Dosage: 420 MG, QD
     Route: 048
     Dates: start: 20161203
  16. BACTRIM DS [Concomitant]
     Active Substance: SULFAMETHOXAZOLE\TRIMETHOPRIM
  17. POTASSIUM CHLORIDE. [Concomitant]
     Active Substance: POTASSIUM CHLORIDE
  18. BELSOMRA [Concomitant]
     Active Substance: SUVOREXANT
  19. LOSARTAN. [Concomitant]
     Active Substance: LOSARTAN

REACTIONS (4)
  - Suicidal ideation [Recovering/Resolving]
  - Blood pressure increased [Not Recovered/Not Resolved]
  - Depression [Recovering/Resolving]
  - Blood creatinine increased [Not Recovered/Not Resolved]
